FAERS Safety Report 22391994 (Version 1)
Quarter: 2023Q2

REPORT INFORMATION
  Report Type: Spontaneous
  Country: US (occurrence: US)
  Receive Date: 20230601
  Receipt Date: 20230601
  Transmission Date: 20230722
  Serious: Yes (Hospitalization, Other)
  Sender: FDA-Public Use
  Company Number: US-drreddys-LIT/USA/23/0166018

PATIENT
  Age: 35 Year
  Sex: Female

DRUGS (4)
  1. FOSPHENYTOIN SODIUM [Suspect]
     Active Substance: FOSPHENYTOIN SODIUM
     Indication: Trigeminal neuralgia
     Route: 042
  2. KETAMINE [Suspect]
     Active Substance: KETAMINE
     Indication: Trigeminal neuralgia
     Route: 042
  3. BACLOFEN [Suspect]
     Active Substance: BACLOFEN
     Indication: Trigeminal neuralgia
  4. GABAPENTIN [Suspect]
     Active Substance: GABAPENTIN
     Indication: Trigeminal neuralgia

REACTIONS (2)
  - Hallucination [Unknown]
  - Drug ineffective for unapproved indication [Unknown]
